APPROVED DRUG PRODUCT: OLMESARTAN MEDOXOMIL
Active Ingredient: OLMESARTAN MEDOXOMIL
Strength: 20MG
Dosage Form/Route: TABLET;ORAL
Application: A206227 | Product #002 | TE Code: AB
Applicant: CHARTWELL RX SCIENCES LLC
Approved: Jan 25, 2024 | RLD: No | RS: No | Type: RX